FAERS Safety Report 4721871-5 (Version None)
Quarter: 2005Q3

REPORT INFORMATION
  Report Type: 
  Country: None (occurrence: None)
  Receive Date: 20050721
  Receipt Date: 20050519
  Transmission Date: 20060218
  Serious: No
  Sender: FDA-Public Use
  Company Number: US-BRISTOL-MYERS SQUIBB COMPANY-12975033

PATIENT
  Age: 35 Year
  Sex: Male
  Weight: 68 kg

DRUGS (2)
  1. COUMADIN [Suspect]
     Indication: COAGULOPATHY
     Route: 048
     Dates: start: 20050301
  2. WARFARIN SODIUM [Suspect]
     Dosage: ADDED TO THE EXISTING COUMADIN DOSE
     Route: 048
     Dates: start: 20050301, end: 20050501

REACTIONS (2)
  - LABORATORY TEST ABNORMAL [None]
  - PHARYNGITIS [None]
